FAERS Safety Report 12542716 (Version 1)
Quarter: 2016Q3

REPORT INFORMATION
  Report Type: Report from Study
  Country: US (occurrence: US)
  Receive Date: 20160709
  Receipt Date: 20160709
  Transmission Date: 20161109
  Serious: Yes (Other)
  Sender: FDA-Public Use
  Company Number: US-AMGEN-USASL2016086798

PATIENT
  Age: 76 Year
  Sex: Male

DRUGS (1)
  1. REPATHA [Suspect]
     Active Substance: EVOLOCUMAB
     Indication: HYPERCHOLESTEROLAEMIA
     Dosage: UNK, TWICE EVERY MONTH
     Route: 065

REACTIONS (6)
  - Unresponsive to stimuli [Recovered/Resolved]
  - Cognitive disorder [Recovered/Resolved]
  - Memory impairment [Unknown]
  - Malaise [Unknown]
  - Fatigue [Unknown]
  - Therapeutic response unexpected [Unknown]
